FAERS Safety Report 15606842 (Version 1)
Quarter: 2018Q4

REPORT INFORMATION
  Report Type: Spontaneous
  Country: US (occurrence: US)
  Receive Date: 20181111
  Receipt Date: 20181111
  Transmission Date: 20190205
  Serious: Yes (Other)
  Sender: FDA-Public Use
  Company Number: None

PATIENT
  Age: 60 Year
  Sex: Female
  Weight: 72 kg

DRUGS (19)
  1. CLOBETASOL [Concomitant]
     Active Substance: CLOBETASOL
  2. BIOTIN [Concomitant]
     Active Substance: BIOTIN
  3. VITAMIN C [Concomitant]
     Active Substance: ASCORBIC ACID
  4. DULOXETINE. [Concomitant]
     Active Substance: DULOXETINE
  5. PROTOPIC [Concomitant]
     Active Substance: TACROLIMUS
  6. REFRESH OPTIVE [Concomitant]
     Active Substance: CARBOXYMETHYLCELLULOSE SODIUM\GLYCERIN
  7. GENTEAL MILD [Concomitant]
     Active Substance: HYPROMELLOSE 2910 (4000 MPA.S)
  8. TALTZ [Suspect]
     Active Substance: IXEKIZUMAB
     Indication: PROSTATIC SPECIFIC ANTIGEN
     Dosage: ?          QUANTITY:1 INJECTION(S);OTHER FREQUENCY:2 TIMES A MONTH;OTHER ROUTE:INJECTION INTO LEG/ STOMACH?
     Dates: start: 20180531, end: 20180712
  9. FLUOCINOLONE ACETONIDE SCALP OIL [Concomitant]
  10. LEFLUNOMIDE. [Concomitant]
     Active Substance: LEFLUNOMIDE
  11. ASACOL [Concomitant]
     Active Substance: MESALAMINE
  12. HYDROCODONE [Concomitant]
     Active Substance: HYDROCODONE
  13. BACITRACIN. [Concomitant]
     Active Substance: BACITRACIN
  14. GAPAPENTINE ARROW [Concomitant]
     Active Substance: GABAPENTIN
  15. IRBESARTAN. [Concomitant]
     Active Substance: IRBESARTAN
  16. ATORVASTATIN [Concomitant]
     Active Substance: ATORVASTATIN
  17. RESTASIS [Concomitant]
     Active Substance: CYCLOSPORINE
  18. AREDS 2 [Concomitant]
     Active Substance: MINERALS\VITAMINS
  19. VITAMIN D [Concomitant]
     Active Substance: CHOLECALCIFEROL

REACTIONS (3)
  - Mental disorder [None]
  - Alopecia [None]
  - Skin wrinkling [None]

NARRATIVE: CASE EVENT DATE: 20180712
